FAERS Safety Report 5080331-5 (Version None)
Quarter: 2006Q3

REPORT INFORMATION
  Report Type: 
  Country: None (occurrence: None)
  Receive Date: 20060809
  Receipt Date: 20060803
  Transmission Date: 20061208
  Serious: Yes (Hospitalization, Other)
  Sender: FDA-Public Use
  Company Number: HQWYE471128JUL06

PATIENT
  Age: 34 Year
  Sex: Male

DRUGS (8)
  1. RAPAMUNE [Suspect]
     Indication: PROPHYLAXIS AGAINST TRANSPLANT REJECTION
     Dosage: 2 MG 1X PER 1 DAY ORAL
     Route: 048
     Dates: start: 20030506, end: 20060404
  2. MYCOPHENOLATE MOFETIL [Suspect]
     Indication: PROPHYLAXIS AGAINST TRANSPLANT REJECTION
     Dosage: 250 MG 1X PER 1 DAY
     Dates: start: 20050922, end: 20060407
  3. PREDNISOLONE [Suspect]
     Indication: PROPHYLAXIS AGAINST TRANSPLANT REJECTION
     Dosage: 5 MG 1X PER 1 DAY ORAL
     Route: 048
     Dates: start: 20020817
  4. PREDNISOLONE [Suspect]
     Indication: SYSTEMIC LUPUS ERYTHEMATOSUS
     Dosage: 5 MG 1X PER 1 DAY ORAL
     Route: 048
     Dates: start: 20020817
  5. AMLODIPINE BESYLATE [Concomitant]
  6. FOSINOPRIL SODIUM [Concomitant]
  7. ATORVASTATIN CALCIUM [Concomitant]
  8. FOLIC ACID [Concomitant]

REACTIONS (6)
  - ALPHA HAEMOLYTIC STREPTOCOCCAL INFECTION [None]
  - NEISSERIA INFECTION [None]
  - PNEUMONIA PRIMARY ATYPICAL [None]
  - PULMONARY FIBROSIS [None]
  - RENAL FAILURE ACUTE [None]
  - STAPHYLOCOCCAL INFECTION [None]
